FAERS Safety Report 9151724 (Version 1)
Quarter: 2013Q1

REPORT INFORMATION
  Report Type: Spontaneous
  Country: US (occurrence: US)
  Receive Date: 20130308
  Receipt Date: 20130308
  Transmission Date: 20140127
  Serious: Yes (Hospitalization)
  Sender: FDA-Public Use
  Company Number: US-GLAXOSMITHKLINE-A0718138A

PATIENT
  Age: 45 Year
  Sex: Male
  Weight: 90.9 kg

DRUGS (10)
  1. AVANDIA [Suspect]
     Indication: TYPE 2 DIABETES MELLITUS
     Dosage: 8MG PER DAY
     Route: 048
     Dates: start: 20040119, end: 20050522
  2. GLUCOPHAGE [Concomitant]
  3. METOPROLOL [Concomitant]
  4. NAPROSYN [Concomitant]
  5. GLYBURIDE [Concomitant]
  6. DARVOCET [Concomitant]
  7. ASPIRIN [Concomitant]
  8. PROTONIX [Concomitant]
  9. AMBIEN [Concomitant]
  10. CHERATUSSIN [Concomitant]

REACTIONS (1)
  - Acute myocardial infarction [Not Recovered/Not Resolved]
